FAERS Safety Report 8520722-0 (Version None)
Quarter: 2012Q3

REPORT INFORMATION
  Report Type: 
  Country: None (occurrence: None)
  Receive Date: 20120705
  Receipt Date: 20120618
  Transmission Date: 20120928
  Serious: Yes (Hospitalization)
  Sender: FDA-Public Use
  Company Number: ACO_30937_2012

PATIENT
  Age: 44 Year
  Sex: Female

DRUGS (1)
  1. FAMPYRA (DALFAMPRIDINE) TABLET [Suspect]
     Indication: PRODUCT USED FOR UNKNOWN INDICATION
     Dosage: TAB

REACTIONS (8)
  - PALPITATIONS [None]
  - URTICARIA VESICULOSA [None]
  - ANXIETY [None]
  - NEURALGIA [None]
  - NAUSEA [None]
  - HYPERAESTHESIA [None]
  - OESOPHAGITIS [None]
  - DIZZINESS [None]
